FAERS Safety Report 11742053 (Version 1)
Quarter: 2015Q4

REPORT INFORMATION
  Report Type: Spontaneous
  Country: US (occurrence: US)
  Receive Date: 20151116
  Receipt Date: 20151116
  Transmission Date: 20160304
  Serious: No
  Sender: FDA-Public Use
  Company Number: US-PFIZER INC-2015376887

PATIENT
  Sex: Male

DRUGS (3)
  1. NEURONTIN [Suspect]
     Active Substance: GABAPENTIN
     Dosage: 200 MG, 2X/DAY (100MG TWO EVERY MORNING AND TWO EVERY NIGHT)
  2. NEURONTIN [Suspect]
     Active Substance: GABAPENTIN
     Dosage: 300 MG, 2X/DAY (100MG THREE EVERY MORNING AND THREE EVERY NIGHT)
  3. NEURONTIN [Suspect]
     Active Substance: GABAPENTIN
     Dosage: 100 MG, 2X/DAY (ONE EVERY MORNING AND ONE EVERY NIGHT)

REACTIONS (1)
  - Drug ineffective [Unknown]
